FAERS Safety Report 18242719 (Version 2)
Quarter: 2020Q3

REPORT INFORMATION
  Report Type: Report from Study
  Country: US (occurrence: US)
  Receive Date: 20200908
  Receipt Date: 20200917
  Transmission Date: 20201103
  Serious: Yes (Hospitalization)
  Sender: FDA-Public Use
  Company Number: US-JNJFOC-A-US2020-207854

PATIENT
  Age: 47 Year
  Sex: Female
  Weight: 110.32 kg

DRUGS (4)
  1. UPTRAVI [Suspect]
     Active Substance: SELEXIPAG
     Indication: PULMONARY ARTERIAL HYPERTENSION
     Dosage: 200 UG BID
     Route: 048
  2. ELIQUIS [Concomitant]
     Active Substance: APIXABAN
  3. TYVASO [Concomitant]
     Active Substance: TREPROSTINIL
  4. OPSUMIT [Suspect]
     Active Substance: MACITENTAN
     Indication: PULMONARY ARTERIAL HYPERTENSION
     Dosage: 10 MG, QD
     Route: 048

REACTIONS (5)
  - COVID-19 [Unknown]
  - Swelling [Not Recovered/Not Resolved]
  - Contusion [Not Recovered/Not Resolved]
  - Gait inability [Unknown]
  - Dyspnoea [Not Recovered/Not Resolved]
